FAERS Safety Report 20509995 (Version 1)
Quarter: 2022Q1

REPORT INFORMATION
  Report Type: Spontaneous
  Country: US (occurrence: US)
  Receive Date: 20220224
  Receipt Date: 20220224
  Transmission Date: 20220423
  Serious: No
  Sender: FDA-Public Use
  Company Number: US-BRISTOL-MYERS SQUIBB COMPANY-BMS-2022-020216

PATIENT
  Age: 65 Year
  Sex: Male
  Weight: 129.27 kg

DRUGS (4)
  1. ELIQUIS [Suspect]
     Active Substance: APIXABAN
     Indication: Embolism venous
     Dosage: 5 MILLIGRAM, BID
     Route: 048
     Dates: start: 20220103
  2. LISINOPRIL [Concomitant]
     Active Substance: LISINOPRIL
     Indication: Product used for unknown indication
     Dosage: UNK
     Route: 065
  3. METOPROLOL [Concomitant]
     Active Substance: METOPROLOL
     Indication: Product used for unknown indication
     Dosage: UNK
     Route: 065
  4. DILTIAZEM [Concomitant]
     Active Substance: DILTIAZEM
     Indication: Product used for unknown indication
     Dosage: UNK
     Route: 065

REACTIONS (10)
  - Pollakiuria [Recovered/Resolved]
  - Prostatitis [Unknown]
  - Urinary tract infection [Unknown]
  - Drug hypersensitivity [Unknown]
  - Nausea [Unknown]
  - Diarrhoea [Unknown]
  - Feeling cold [Unknown]
  - Peripheral swelling [Unknown]
  - Dry skin [Unknown]
  - Cough [Unknown]

NARRATIVE: CASE EVENT DATE: 20220129
